FAERS Safety Report 18644810 (Version 1)
Quarter: 2020Q4

REPORT INFORMATION
  Report Type: Spontaneous
  Country: AT (occurrence: AT)
  Receive Date: 20201221
  Receipt Date: 20201221
  Transmission Date: 20210114
  Serious: Yes (Other)
  Sender: FDA-Public Use
  Company Number: AT-MYLANLABS-2020M1102610

PATIENT
  Age: 63 Year
  Sex: Male

DRUGS (1)
  1. AMLODIPINE [Suspect]
     Active Substance: AMLODIPINE BESYLATE
     Indication: HYPERTENSION
     Dosage: 5 MG, 1X/DAY

REACTIONS (4)
  - Atrial enlargement [Unknown]
  - Atrial fibrillation [Recovered/Resolved]
  - Diastolic dysfunction [Unknown]
  - Cardiac hypertrophy [Unknown]
